FAERS Safety Report 22285476 (Version 3)
Quarter: 2023Q2

REPORT INFORMATION
  Report Type: Spontaneous
  Country: BR (occurrence: BR)
  Receive Date: 20230504
  Receipt Date: 20230523
  Transmission Date: 20230721
  Serious: Yes (Other)
  Sender: FDA-Public Use
  Company Number: BR-009507513-2305BRA000511

PATIENT
  Age: 77 Year
  Sex: Female

DRUGS (10)
  1. PEMBROLIZUMAB [Suspect]
     Active Substance: PEMBROLIZUMAB
     Indication: Triple negative breast cancer
     Dosage: PHASE 1
  2. PEMBROLIZUMAB [Suspect]
     Active Substance: PEMBROLIZUMAB
     Dosage: PHASE 2
  3. LOSARTAN POTASSIUM [Suspect]
     Active Substance: LOSARTAN POTASSIUM
     Dosage: 50 MG
  4. CARBOPLATIN [Concomitant]
     Active Substance: CARBOPLATIN
     Indication: Triple negative breast cancer
     Dosage: PHASE 1: AUC 1.5 WEEKLY X 12
  5. PACLITAXEL [Concomitant]
     Active Substance: PACLITAXEL
     Indication: Triple negative breast cancer
     Dosage: PHASE 1: 80 MG/M2 WEEKLY X 12
  6. DOXORUBICIN [Concomitant]
     Active Substance: DOXORUBICIN
     Indication: Triple negative breast cancer
     Dosage: PHASE 2
  7. CYCLOPHOSPHAMIDE [Concomitant]
     Active Substance: CYCLOPHOSPHAMIDE
     Indication: Triple negative breast cancer
     Dosage: PHASE 2
  8. LEVOTHYROXINE [Concomitant]
     Active Substance: LEVOTHYROXINE
  9. HYDROCHLOROTIAZID [Concomitant]
  10. PITAVASTATIN [Concomitant]
     Active Substance: PITAVASTATIN
     Dosage: 2 MG

REACTIONS (3)
  - Neuropathy peripheral [Unknown]
  - Infusion related reaction [Unknown]
  - Anaemia [Unknown]
